FAERS Safety Report 6153990-3 (Version None)
Quarter: 2009Q2

REPORT INFORMATION
  Report Type: 
  Country: None (occurrence: None)
  Receive Date: 20090414
  Receipt Date: 20090408
  Transmission Date: 20091009
  Serious: Yes (Death, Life-Threatening, Hospitalization)
  Sender: FDA-Public Use
  Company Number: ES-BRISTOL-MYERS SQUIBB COMPANY-14073852

PATIENT
  Age: 61 Year
  Sex: Female

DRUGS (3)
  1. CETUXIMAB [Suspect]
     Indication: HEAD AND NECK CANCER
     Dosage: 2MG/ML. LAST INFUSION ON 28JAN08. PERMANENTLY DISCONTINUED ON 04FEB08
     Route: 041
     Dates: start: 20051115, end: 20080128
  2. CARBOPLATIN [Suspect]
     Indication: HEAD AND NECK CANCER
     Dosage: LAST INFUSION ON 27FEB06, 1 DOSAGE FORM=AUC 5 (TAKENON DAY 1).
     Route: 042
     Dates: start: 20051115, end: 20060227
  3. FLUOROURACIL [Suspect]
     Indication: HEAD AND NECK CANCER
     Dosage: LAST INFUSION ON 27FEB06.
     Route: 042
     Dates: start: 20051115, end: 20060227

REACTIONS (3)
  - OBLITERATIVE BRONCHIOLITIS [None]
  - PYREXIA [None]
  - RESPIRATORY FAILURE [None]
